FAERS Safety Report 9306512 (Version 1)
Quarter: 2013Q1

REPORT INFORMATION
  Report Type: Spontaneous
  Country: US (occurrence: None)
  Receive Date: 20130122
  Receipt Date: 20130122
  Transmission Date: 20140127
  Serious: Yes (Death, Hospitalization)
  Sender: FDA-Public Use
  Company Number: UTC-027445

PATIENT
  Age: 45 Year
  Sex: Male
  Weight: 74.4 kg

DRUGS (3)
  1. TYVASO (6 MICROGRAM, AEROSOL FOR INHALATION) (TREPROSTINIL SODIUM) [Suspect]
     Indication: PULMONARY ARTERIAL HYPERTENSION
     Dosage: (24 MCG,4 IN 1 D)
     Route: 055
     Dates: start: 20121108, end: 2012
  2. ADCIRCA (TADALAFIL) [Concomitant]
  3. COUMADIN [Suspect]

REACTIONS (3)
  - Pulseless electrical activity [None]
  - Cardio-respiratory arrest [None]
  - Bronchitis [None]
